FAERS Safety Report 17535752 (Version 5)
Quarter: 2020Q2

REPORT INFORMATION
  Report Type: Spontaneous
  Country: BR (occurrence: BR)
  Receive Date: 20200313
  Receipt Date: 20200616
  Transmission Date: 20200713
  Serious: Yes (Other)
  Sender: FDA-Public Use
  Company Number: BR-CELLTRION INC.-2018BR023844

PATIENT

DRUGS (5)
  1. REMSIMA [Suspect]
     Active Substance: INFLIXIMAB
     Indication: INTESTINAL HAEMORRHAGE
     Dosage: UNK
     Route: 065
  2. REMSIMA [Suspect]
     Active Substance: INFLIXIMAB
     Indication: COLITIS ULCERATIVE
     Dosage: UNK
     Route: 065
  3. REMSIMA [Suspect]
     Active Substance: INFLIXIMAB
     Dosage: UNK
     Route: 065
  4. REMSIMA [Suspect]
     Active Substance: INFLIXIMAB
     Dosage: UNK
     Route: 065
     Dates: start: 20180903
  5. REMSIMA [Suspect]
     Active Substance: INFLIXIMAB
     Dosage: AMPOULE BOTTLE 100 MG AT AN UNKNOWN DOSE EVERY 2 MONTHS
     Route: 065
     Dates: start: 201807, end: 201807

REACTIONS (6)
  - Feeling abnormal [Unknown]
  - Off label use [Unknown]
  - Therapeutic product effect incomplete [Unknown]
  - Emotional disorder [Unknown]
  - Nervousness [Unknown]
  - Drug ineffective [Unknown]

NARRATIVE: CASE EVENT DATE: 2018
